FAERS Safety Report 9451029 (Version 2)
Quarter: 2013Q4

REPORT INFORMATION
  Report Type: Spontaneous
  Country: DE (occurrence: None)
  Receive Date: 20130807
  Receipt Date: 20131001
  Transmission Date: 20140711
  Serious: Yes (Other)
  Sender: FDA-Public Use
  Company Number: 2013070469

PATIENT
  Sex: Male

DRUGS (2)
  1. VIVIDRIN [Suspect]
     Indication: RHINITIS ALLERGIC
     Dosage: (3 TO 5 TIMES PER DAY )
     Route: 047
  2. VIVIDRIN AKUT KOMBI-NS (AZELASTINE HYDROCHLORIDE) [Suspect]
     Dosage: (3 TO 5 TIMES PER DAY)
     Route: 045

REACTIONS (5)
  - Ageusia [None]
  - Eye irritation [None]
  - Mucosal dryness [None]
  - Hyposmia [None]
  - Parosmia [None]
